FAERS Safety Report 15278635 (Version 1)
Quarter: 2018Q3

REPORT INFORMATION
  Report Type: Spontaneous
  Country: ES (occurrence: ES)
  Receive Date: 20180815
  Receipt Date: 20180815
  Transmission Date: 20181010
  Serious: Yes (Other)
  Sender: FDA-Public Use
  Company Number: ES-TEVA-2018-ES-940728

PATIENT
  Age: 70 Year
  Sex: Male

DRUGS (3)
  1. TEICOPLANINA (2474A) [Concomitant]
     Indication: PYELONEPHRITIS
     Dosage: 450 MILLIGRAM DAILY;
     Route: 042
     Dates: start: 20170508, end: 20170516
  2. SEPTRIN FORTE 160 MG/800 MG COMPRIMIDOS, 20 COMPRIMIDOS [Concomitant]
     Active Substance: SULFAMETHOXAZOLE\TRIMETHOPRIM
     Indication: PROPHYLAXIS
     Dosage: 1 TIME A DAY MONDAY, WEDNESDAY AND FRIDAY
     Route: 048
     Dates: start: 20170513
  3. PREDNISONA (886A) [Suspect]
     Active Substance: PREDNISONE
     Indication: RENAL TRANSPLANT
     Dosage: 20 MILLIGRAM DAILY; 20MG IN THE MORNING UNTIL 7/9/2017, THEN 5MG
     Route: 048
     Dates: start: 20170507

REACTIONS (1)
  - Hyperamylasaemia [Recovered/Resolved]

NARRATIVE: CASE EVENT DATE: 20170511
